FAERS Safety Report 8347299-7 (Version None)
Quarter: 2012Q2

REPORT INFORMATION
  Report Type: 
  Country: None (occurrence: None)
  Receive Date: 20120509
  Receipt Date: 20120501
  Transmission Date: 20120825
  Serious: Yes (Death, Other)
  Sender: FDA-Public Use
  Company Number: GB-ROCHE-1014719

PATIENT
  Sex: Female
  Weight: 58.067 kg

DRUGS (14)
  1. SIMVASTATIN [Concomitant]
  2. LUCENTIS [Suspect]
     Indication: AGE-RELATED MACULAR DEGENERATION
     Route: 050
     Dates: start: 20090409
  3. LUCENTIS [Suspect]
     Dates: start: 20100401
  4. OMEPRAZOLE [Concomitant]
  5. LUCENTIS [Suspect]
     Route: 050
     Dates: start: 20100401
  6. LUCENTIS [Suspect]
     Route: 050
     Dates: start: 20090611
  7. ADCAL [Concomitant]
     Dates: start: 20040801
  8. PREDNISOLONE [Concomitant]
     Dates: start: 20040501
  9. NITROGLYCERIN [Concomitant]
  10. LUCENTIS [Suspect]
     Route: 050
     Dates: start: 20090915
  11. AMLODIPINE [Concomitant]
     Dates: start: 20100401
  12. LUCENTIS [Suspect]
     Route: 050
     Dates: start: 20090507
  13. ISMN [Concomitant]
  14. BISOPROLOL FUMARATE [Concomitant]
     Dates: start: 20100301

REACTIONS (2)
  - ANGINA PECTORIS [None]
  - ACUTE MYOCARDIAL INFARCTION [None]
